FAERS Safety Report 10150520 (Version 2)
Quarter: 2014Q2

REPORT INFORMATION
  Report Type: Spontaneous
  Country: US (occurrence: US)
  Receive Date: 20140502
  Receipt Date: 20140521
  Transmission Date: 20141212
  Serious: Yes (Death, Other)
  Sender: FDA-Public Use
  Company Number: US-BAXTER-2014BAX020827

PATIENT
  Sex: Male

DRUGS (1)
  1. DIANEAL LOW CALCIUM [Suspect]
     Indication: PERITONEAL DIALYSIS
     Route: 033
     Dates: end: 20140413

REACTIONS (5)
  - Cardiac arrest [Fatal]
  - Renal failure [Fatal]
  - Sepsis [Fatal]
  - Diabetes mellitus [Fatal]
  - Haemorrhoids [Unknown]
